FAERS Safety Report 11629149 (Version 9)
Quarter: 2015Q4

REPORT INFORMATION
  Report Type: Spontaneous
  Country: US (occurrence: US)
  Receive Date: 20151014
  Receipt Date: 20151126
  Transmission Date: 20160304
  Serious: Yes (Death, Hospitalization)
  Sender: FDA-Public Use
  Company Number: US-JNJFOC-20151008842

PATIENT
  Age: 81 Year
  Sex: Male
  Weight: 72.12 kg

DRUGS (3)
  1. XARELTO [Suspect]
     Active Substance: RIVAROXABAN
     Indication: CARDIAC ANEURYSM
     Route: 048
     Dates: start: 201503
  2. ARICEPT [Concomitant]
     Active Substance: DONEPEZIL HYDROCHLORIDE
     Indication: DEMENTIA
     Route: 065
  3. XARELTO [Suspect]
     Active Substance: RIVAROXABAN
     Indication: ATRIAL SEPTAL DEFECT
     Route: 048
     Dates: start: 201503

REACTIONS (3)
  - Off label use [Unknown]
  - Haemorrhagic stroke [Fatal]
  - Product use issue [Unknown]

NARRATIVE: CASE EVENT DATE: 20151009
